FAERS Safety Report 20348027 (Version 3)
Quarter: 2022Q1

REPORT INFORMATION
  Report Type: Spontaneous
  Country: JP (occurrence: JP)
  Receive Date: 20220118
  Receipt Date: 20220221
  Transmission Date: 20220423
  Serious: Yes (Hospitalization, Other)
  Sender: FDA-Public Use
  Company Number: JP-BRISTOL-MYERS SQUIBB COMPANY-BMS-2021-117274

PATIENT
  Age: 65 Year
  Sex: Male
  Weight: 43.9 kg

DRUGS (14)
  1. OPDIVO [Suspect]
     Active Substance: NIVOLUMAB
     Indication: Non-small cell lung cancer
     Dosage: 360 MILLIGRAM
     Route: 041
     Dates: start: 20211006, end: 20211006
  2. YERVOY [Suspect]
     Active Substance: IPILIMUMAB
     Indication: Non-small cell lung cancer recurrent
     Dosage: 43.9 MG
     Route: 041
     Dates: start: 20211006, end: 20211006
  3. PACLITAXEL [Suspect]
     Active Substance: PACLITAXEL
     Indication: Non-small cell lung cancer recurrent
     Dosage: 292 MILLIGRAM
     Route: 065
     Dates: start: 20211006, end: 20211006
  4. CARBOPLATIN [Suspect]
     Active Substance: CARBOPLATIN
     Indication: Non-small cell lung cancer recurrent
     Dosage: 412 MILLIGRAM
     Route: 065
     Dates: start: 20211006, end: 20211006
  5. SOLU-MEDROL [Suspect]
     Active Substance: METHYLPREDNISOLONE SODIUM SUCCINATE
     Indication: Peripheral motor neuropathy
     Dosage: TAPERED
     Route: 042
     Dates: start: 20211029
  6. SOLU-MEDROL [Suspect]
     Active Substance: METHYLPREDNISOLONE SODIUM SUCCINATE
     Indication: Peripheral sensory neuropathy
     Dosage: 125 MILLIGRAM
     Route: 042
     Dates: start: 20211116, end: 20211122
  7. SOLU-MEDROL [Suspect]
     Active Substance: METHYLPREDNISOLONE SODIUM SUCCINATE
     Dosage: 100 MILLIGRAM
     Route: 042
     Dates: start: 20211123, end: 20211127
  8. PREDONINE [Suspect]
     Active Substance: PREDNISOLONE
     Indication: Peripheral motor neuropathy
     Dosage: 60 MILLIGRAM
     Route: 065
     Dates: start: 20211109, end: 20211115
  9. PREDONINE [Suspect]
     Active Substance: PREDNISOLONE
     Indication: Peripheral sensory neuropathy
     Dosage: 50 MILLIGRAM
     Route: 065
     Dates: start: 20211116
  10. PREDONINE [Suspect]
     Active Substance: PREDNISOLONE
     Dosage: 80 MILLIGRAM
     Route: 065
     Dates: start: 20211128
  11. PREDONINE [Suspect]
     Active Substance: PREDNISOLONE
     Dosage: 35 MILLIGRAM
     Route: 048
     Dates: start: 20211223
  12. SITAGLIPTIN [Suspect]
     Active Substance: SITAGLIPTIN
     Indication: Steroid diabetes
     Dosage: UNK
     Route: 065
     Dates: start: 20211111
  13. SITAGLIPTIN [Suspect]
     Active Substance: SITAGLIPTIN
     Indication: Hyperglycaemia
  14. RABEPRAZOLE SODIUM [Concomitant]
     Active Substance: RABEPRAZOLE SODIUM
     Indication: Prophylaxis against gastrointestinal ulcer
     Dosage: 10 MG, EVERYDAY
     Route: 048
     Dates: start: 20211010

REACTIONS (8)
  - Peripheral motor neuropathy [Recovering/Resolving]
  - Peripheral sensory neuropathy [Recovering/Resolving]
  - Hyperkalaemia [Recovering/Resolving]
  - Steroid diabetes [Unknown]
  - Insomnia [Unknown]
  - Constipation [Unknown]
  - Diarrhoea [Unknown]
  - Hyperglycaemia [Unknown]

NARRATIVE: CASE EVENT DATE: 20211013
